APPROVED DRUG PRODUCT: ALOXI
Active Ingredient: PALONOSETRON HYDROCHLORIDE
Strength: EQ 0.075MG BASE/1.5ML (EQ 0.05MG BASE/ML) **Federal Register determination that product was not discontinued or withdrawn for safety or effectiveness reasons**
Dosage Form/Route: INJECTABLE;INTRAVENOUS
Application: N021372 | Product #002
Applicant: HELSINN HEALTHCARE SA
Approved: Feb 29, 2008 | RLD: Yes | RS: No | Type: DISCN